FAERS Safety Report 6249364-7 (Version None)
Quarter: 2009Q2

REPORT INFORMATION
  Report Type: 
  Country: None (occurrence: None)
  Receive Date: 20090625
  Receipt Date: 20090625
  Transmission Date: 20091009
  Serious: No
  Sender: FDA-Public Use
  Company Number: None

PATIENT
  Age: 61 Year
  Sex: Female
  Weight: 71.6683 kg

DRUGS (1)
  1. CIPRO [Suspect]
     Indication: DIVERTICULITIS
     Dosage: 15 1 A DAY
     Dates: start: 19920204, end: 19920219

REACTIONS (3)
  - GAIT DISTURBANCE [None]
  - PAIN [None]
  - TENDON DISORDER [None]
